FAERS Safety Report 5317393-3 (Version None)
Quarter: 2007Q2

REPORT INFORMATION
  Report Type: 
  Country: None (occurrence: None)
  Receive Date: 20070504
  Receipt Date: 20070502
  Transmission Date: 20071010
  Serious: Yes (Hospitalization)
  Sender: FDA-Public Use
  Company Number: US-ALLERGAN-0702947US

PATIENT
  Sex: Female

DRUGS (4)
  1. BOTOX [Suspect]
     Indication: MUSCLE SPASTICITY
     Dosage: 600 UNITS, SINGLE
     Route: 030
     Dates: start: 20070321, end: 20070321
  2. FENTANYL [Suspect]
     Indication: SEDATION
     Dosage: UNK, UNK
     Dates: start: 20070321, end: 20070321
  3. FENTANYL [Suspect]
     Indication: PAIN
  4. VERSED [Suspect]
     Indication: SEDATION
     Dates: start: 20070321, end: 20070321

REACTIONS (2)
  - ABDOMINAL PAIN [None]
  - ILEUS [None]
